FAERS Safety Report 10563234 (Version 3)
Quarter: 2014Q4

REPORT INFORMATION
  Report Type: Spontaneous
  Country: US (occurrence: US)
  Receive Date: 20141104
  Receipt Date: 20141212
  Transmission Date: 20150529
  Serious: Yes (Hospitalization, Other)
  Sender: FDA-Public Use
  Company Number: US-GLAXOSMITHKLINE-A0873084A

PATIENT
  Sex: Male

DRUGS (1)
  1. AVANDIA [Suspect]
     Active Substance: ROSIGLITAZONE MALEATE
     Indication: DIABETES MELLITUS
     Dosage: UNK
     Route: 048
     Dates: start: 199902, end: 200004

REACTIONS (4)
  - Cardiac failure congestive [Unknown]
  - Arteriosclerosis coronary artery [Unknown]
  - Myocardial infarction [Unknown]
  - Angina pectoris [Unknown]
